FAERS Safety Report 14075672 (Version 3)
Quarter: 2018Q1

REPORT INFORMATION
  Report Type: Spontaneous
  Country: US (occurrence: US)
  Receive Date: 20171011
  Receipt Date: 20180226
  Transmission Date: 20180508
  Serious: No
  Sender: FDA-Public Use
  Company Number: US-PFIZER INC-2017434519

PATIENT
  Age: 70 Year
  Sex: Female

DRUGS (3)
  1. CLONIDINE. [Concomitant]
     Active Substance: CLONIDINE
     Indication: HYPERTENSION
     Dosage: UNK UNK, 2X/DAY [TAKE 1/2 1 MG IN THE MORNING AND 1 PILL 1 MG IN THE EVENING]
  2. PRISTIQ EXTENDED-RELEASE [Suspect]
     Active Substance: DESVENLAFAXINE SUCCINATE
     Indication: MAJOR DEPRESSION
     Dosage: 25 MG, DAILY
  3. PRISTIQ EXTENDED-RELEASE [Suspect]
     Active Substance: DESVENLAFAXINE SUCCINATE
     Indication: ANXIETY

REACTIONS (5)
  - Blood pressure increased [Unknown]
  - Dyspnoea [Unknown]
  - Nausea [Unknown]
  - Feeling abnormal [Unknown]
  - Agitation [Unknown]

NARRATIVE: CASE EVENT DATE: 20170930
